FAERS Safety Report 4898792-0 (Version None)
Quarter: 2006Q1

REPORT INFORMATION
  Report Type: 
  Country: None (occurrence: None)
  Receive Date: 20060127
  Receipt Date: 20060119
  Transmission Date: 20060701
  Serious: Yes (Hospitalization, Other)
  Sender: FDA-Public Use
  Company Number: 2006011398

PATIENT
  Age: 58 Year
  Sex: Female

DRUGS (3)
  1. CELEBREX [Suspect]
     Indication: ARTHRITIS
     Dosage: 1 IN 1 D
  2. PREDNISONE [Concomitant]
  3. WELLBUTRIN [Concomitant]

REACTIONS (4)
  - BACK DISORDER [None]
  - CEREBROVASCULAR ACCIDENT [None]
  - MEMORY IMPAIRMENT [None]
  - SINUSITIS [None]
